FAERS Safety Report 8855504 (Version 1)
Quarter: 2012Q4

REPORT INFORMATION
  Report Type: 
  Country: US (occurrence: US)
  Receive Date: 20121023
  Receipt Date: 20121023
  Transmission Date: 20130627
  Serious: No
  Sender: FDA-Public Use
  Company Number: US-AMGEN-USASP2012059572

PATIENT
  Sex: Female
  Weight: 64.4 kg

DRUGS (9)
  1. ENBREL [Suspect]
     Indication: PRODUCT USED FOR UNKNOWN INDICATION
     Dosage: 50 mg, qwk
     Route: 058
  2. METHOTREXATE [Concomitant]
     Dosage: 50 mg/2ml, UNK
  3. PREDNISONE [Concomitant]
     Dosage: 10 mg, UNK
  4. FOLIC ACID [Concomitant]
     Dosage: UNK
  5. VITAMIN D3 [Concomitant]
     Dosage: UNK
  6. CALCIUM 600 [Concomitant]
     Dosage: UNK
  7. TYLENOL /00020001/ [Concomitant]
     Dosage: 325 mg, UNK
  8. SIMVASTATIN [Concomitant]
     Dosage: 5 mg, UNK
  9. ESCITALOPRAM [Concomitant]
     Dosage: 5 mg, UNK

REACTIONS (1)
  - Weight increased [Unknown]
